FAERS Safety Report 7024434-4 (Version None)
Quarter: 2010Q4

REPORT INFORMATION
  Report Type: 
  Country: None (occurrence: None)
  Receive Date: 20101001
  Receipt Date: 20100921
  Transmission Date: 20110411
  Serious: Yes (Life-Threatening, Hospitalization)
  Sender: FDA-Public Use
  Company Number: DE-ROCHE-729863

PATIENT
  Sex: Male
  Weight: 102 kg

DRUGS (4)
  1. BEVACIZUMAB [Suspect]
     Route: 042
     Dates: start: 20100914, end: 20100918
  2. CAPECITABINE [Suspect]
     Route: 048
     Dates: start: 20100914, end: 20100918
  3. IRINOTECAN HCL [Concomitant]
     Route: 042
     Dates: start: 20100914
  4. KEVATRIL [Concomitant]
     Route: 042
     Dates: start: 20100914

REACTIONS (1)
  - ACUTE CORONARY SYNDROME [None]
